FAERS Safety Report 5299931-2 (Version None)
Quarter: 2007Q2

REPORT INFORMATION
  Report Type: 
  Country: None (occurrence: None)
  Receive Date: 20070410
  Receipt Date: 20070403
  Transmission Date: 20071010
  Serious: Yes (Hospitalization)
  Sender: FDA-Public Use
  Company Number: D0052492A

PATIENT
  Age: 71 Year
  Sex: Female
  Weight: 69.8539 kg

DRUGS (6)
  1. AVANDIA [Suspect]
     Indication: DIABETES MELLITUS NON-INSULIN-DEPENDENT
     Dosage: 4 MG / PER DAY / ORAL
     Route: 048
     Dates: start: 20050301, end: 20070305
  2. LANSOPRAZOLE [Concomitant]
  3. HCTZ + QUINAPRIL [Concomitant]
  4. SIMVASTATIN [Concomitant]
  5. VERAPAMIL HYDROCHLORIDE [Concomitant]
  6. LEVOTHYROXINE SODIUM [Concomitant]

REACTIONS (2)
  - HUMERUS FRACTURE [None]
  - MULTIPLE FRACTURES [None]
